FAERS Safety Report 6929219-2 (Version None)
Quarter: 2010Q3

REPORT INFORMATION
  Report Type: 
  Country: None (occurrence: None)
  Receive Date: 20100813
  Receipt Date: 20100810
  Transmission Date: 20110219
  Serious: Yes (Hospitalization)
  Sender: FDA-Public Use
  Company Number: 1000014799

PATIENT
  Age: 79 Year
  Sex: Male

DRUGS (10)
  1. BYSTOLIC [Suspect]
     Indication: HYPERTENSION
     Dosage: 5 MG (5 MG, 1 IN 1 D), ORAL
     Route: 048
     Dates: start: 20100101, end: 20100421
  2. LANTUS [Concomitant]
  3. NOVOLOG (INJECTION) [Concomitant]
  4. GEMFIBROZIL [Concomitant]
  5. VITAMIN B-12 [Concomitant]
  6. ENALAPRIL MALEATE [Concomitant]
  7. HYDROCHLOROTHIAZIDE [Concomitant]
  8. ASPIRIN [Concomitant]
  9. FLOMAX (TABLETS) [Concomitant]
  10. HYDRALAZINE (TABLETS) [Concomitant]

REACTIONS (4)
  - DIZZINESS [None]
  - EJECTION FRACTION DECREASED [None]
  - MITRAL VALVE INCOMPETENCE [None]
  - SINUS BRADYCARDIA [None]
